FAERS Safety Report 4638289-6 (Version None)
Quarter: 2005Q2

REPORT INFORMATION
  Report Type: 
  Country: None (occurrence: None)
  Receive Date: 20050418
  Receipt Date: 20050329
  Transmission Date: 20051028
  Serious: Yes (Other)
  Sender: FDA-Public Use
  Company Number: USA050394403

PATIENT
  Age: 70 Year
  Sex: Female

DRUGS (1)
  1. HUMALOG [Suspect]
     Indication: DIABETES MELLITUS
     Dates: start: 19950101

REACTIONS (4)
  - HEPATIC INFECTION [None]
  - LIVER DISORDER [None]
  - PHARMACEUTICAL PRODUCT COMPLAINT [None]
  - SPLENOMEGALY [None]
